FAERS Safety Report 14122584 (Version 2)
Quarter: 2018Q1

REPORT INFORMATION
  Report Type: Report from Study
  Country: PT (occurrence: PT)
  Receive Date: 20171024
  Receipt Date: 20180130
  Transmission Date: 20180508
  Serious: Yes (Congenital Anomaly, Other)
  Sender: FDA-Public Use
  Company Number: PT-GILEAD-2017-0300447

PATIENT
  Age: 0 Year
  Sex: Male

DRUGS (4)
  1. RALTEGRAVIR POTASSIUM [Suspect]
     Active Substance: RALTEGRAVIR POTASSIUM
     Indication: HIV INFECTION
     Dosage: UNK
     Route: 064
     Dates: start: 20150825, end: 20160316
  2. TENOFOVIR DISOPROXIL FUMARATE. [Suspect]
     Active Substance: TENOFOVIR DISOPROXIL FUMARATE
     Indication: HIV INFECTION
     Dosage: UNK
     Route: 064
     Dates: start: 20150825, end: 20160316
  3. LAMIVUDINE AND ZIDOVUDINE [Suspect]
     Active Substance: LAMIVUDINE\ZIDOVUDINE
     Indication: HIV INFECTION
     Dosage: UNK
     Route: 064
     Dates: start: 20150825, end: 20160316
  4. DARUNAVIR [Suspect]
     Active Substance: DARUNAVIR
     Indication: HIV INFECTION
     Dosage: UNK
     Route: 064
     Dates: start: 20150825, end: 20160316

REACTIONS (3)
  - Foetal exposure during pregnancy [Recovered/Resolved]
  - Cerebral ventricle dilatation [Unknown]
  - Left ventricular enlargement [Unknown]

NARRATIVE: CASE EVENT DATE: 20150825
